FAERS Safety Report 23121867 (Version 1)
Quarter: 2023Q4

REPORT INFORMATION
  Report Type: Spontaneous
  Country: BR (occurrence: BR)
  Receive Date: 20231030
  Receipt Date: 20231030
  Transmission Date: 20240110
  Serious: Yes (Life-Threatening)
  Sender: FDA-Public Use
  Company Number: BR-JNJFOC-20231044876

PATIENT
  Age: 43 Year
  Sex: Female

DRUGS (2)
  1. AMIVANTAMAB [Suspect]
     Active Substance: AMIVANTAMAB
     Indication: Lung neoplasm
     Dosage: TREATMENT WITH AMIVANTAMAB AS MONOTHERAPY
     Route: 065
     Dates: start: 20231004
  2. DECADRON [Concomitant]
     Active Substance: DEXAMETHASONE
     Indication: Brain oedema
     Dosage: START DATE: 23/OCT/2023
     Route: 042

REACTIONS (2)
  - Anaphylactic reaction [Unknown]
  - Infusion related reaction [Unknown]
